FAERS Safety Report 7859979-8 (Version None)
Quarter: 2011Q4

REPORT INFORMATION
  Report Type: 
  Country: None (occurrence: None)
  Receive Date: 20111026
  Receipt Date: 20111026
  Transmission Date: 20120403
  Serious: Yes (Hospitalization)
  Sender: FDA-Public Use
  Company Number: None

PATIENT
  Age: 37 Year
  Sex: Female
  Weight: 72.7 kg

DRUGS (2)
  1. NAPROXEN [Suspect]
     Indication: PAIN
     Dosage: UNK DOSE ORAL
     Route: 048
     Dates: start: 20111017
  2. PLAQUENIL [Suspect]
     Indication: SYSTEMIC LUPUS ERYTHEMATOSUS
     Dosage: Q DAY ORAL PRIOR TO
     Route: 048
     Dates: start: 20111017

REACTIONS (2)
  - ANGIOEDEMA [None]
  - DYSPHONIA [None]
